FAERS Safety Report 5483555-8 (Version None)
Quarter: 2007Q4

REPORT INFORMATION
  Report Type: 
  Country: None (occurrence: None)
  Receive Date: 20071012
  Receipt Date: 20071002
  Transmission Date: 20080405
  Serious: Yes (Hospitalization)
  Sender: FDA-Public Use
  Company Number: DE-AMGEN-UK243091

PATIENT
  Sex: Male

DRUGS (8)
  1. ARANESP [Suspect]
     Indication: RENAL FAILURE CHRONIC
     Route: 058
     Dates: start: 20070706
  2. METOPROLOL TARTRATE [Concomitant]
     Dates: start: 20070623
  3. TORSEMIDE [Concomitant]
     Dates: start: 20070623
  4. CAPTOPRIL [Concomitant]
     Dates: start: 20070623
  5. LERCANIDIPINE HYDROCHLORIDE [Concomitant]
     Dates: start: 20070623
  6. ACTRAPHANE HM [Concomitant]
     Dates: start: 20070625
  7. SODIUM BICARBONATE [Concomitant]
     Dates: start: 20070625
  8. MOXONIDINE [Concomitant]

REACTIONS (4)
  - ANGIOEDEMA [None]
  - LIP SWELLING [None]
  - OEDEMA MOUTH [None]
  - SWOLLEN TONGUE [None]
